FAERS Safety Report 8853919 (Version 1)
Quarter: 2012Q4

REPORT INFORMATION
  Report Type: 
  Country: DE (occurrence: DE)
  Receive Date: 20121022
  Receipt Date: 20121022
  Transmission Date: 20130627
  Serious: Yes (Other)
  Sender: FDA-Public Use
  Company Number: PHHY2012DE092709

PATIENT
  Sex: Male

DRUGS (2)
  1. RASILEZ [Suspect]
     Indication: HYPERTENSION
  2. ANTIHYPERTENSIVE DRUGS [Concomitant]

REACTIONS (3)
  - Renin increased [Unknown]
  - Blood aldosterone increased [Unknown]
  - Blood pressure increased [Unknown]
